FAERS Safety Report 6040618-6 (Version None)
Quarter: 2009Q1

REPORT INFORMATION
  Report Type: 
  Country: None (occurrence: None)
  Receive Date: 20090116
  Receipt Date: 20080416
  Transmission Date: 20090719
  Serious: No
  Sender: FDA-Public Use
  Company Number: US-BRISTOL-MYERS SQUIBB COMPANY-14155428

PATIENT
  Age: 55 Year
  Sex: Male

DRUGS (3)
  1. ABILIFY [Suspect]
     Indication: MAJOR DEPRESSION
     Route: 048
     Dates: start: 20080229
  2. LAMICTAL [Concomitant]
     Dosage: 1 DOSAGEFORM = 300 (NO UNITS)
  3. AMBIEN [Concomitant]
     Dosage: 1 DOSAGEFORM = 12.5 (NO UNITS)

REACTIONS (1)
  - TREMOR [None]
